FAERS Safety Report 16019107 (Version 2)
Quarter: 2022Q1

REPORT INFORMATION
  Report Type: Spontaneous
  Country: US (occurrence: US)
  Receive Date: 20190228
  Receipt Date: 20220323
  Transmission Date: 20220424
  Serious: No
  Sender: FDA-Public Use
  Company Number: US-TEVA-2019-US-1006724

PATIENT
  Age: 53 Year
  Sex: Female
  Weight: 145.15 kg

DRUGS (1)
  1. DOCETAXEL [Suspect]
     Active Substance: DOCETAXEL
     Dosage: 195, 144 (UNITS NOT REPORTED), FREQUENCY: EVERY THREE WEEKS
     Route: 065
     Dates: start: 20130321, end: 20130704

REACTIONS (3)
  - Alopecia [Unknown]
  - Madarosis [Unknown]
  - Alopecia areata [Unknown]
